FAERS Safety Report 4492834-2 (Version None)
Quarter: 2004Q4

REPORT INFORMATION
  Report Type: 
  Country: None (occurrence: None)
  Receive Date: 20041102
  Receipt Date: 20041102
  Transmission Date: 20050328
  Serious: Yes (Hospitalization)
  Sender: FDA-Public Use
  Company Number: None

PATIENT
  Age: 69 Year
  Sex: Male
  Weight: 43.5453 kg

DRUGS (1)
  1. AGGRENOX [Suspect]
     Indication: ISCHAEMIA
     Dosage: 1 BID ORAL
     Route: 048
     Dates: start: 20040513, end: 20040519

REACTIONS (1)
  - HEADACHE [None]
